FAERS Safety Report 9782697 (Version 1)
Quarter: 2013Q4

REPORT INFORMATION
  Report Type: Spontaneous
  Country: FR (occurrence: None)
  Receive Date: 20131220
  Receipt Date: 20131220
  Transmission Date: 20140711
  Serious: Yes (Hospitalization)
  Sender: FDA-Public Use
  Company Number: 1953858

PATIENT
  Age: 65 Year
  Sex: Female

DRUGS (6)
  1. (CARBOPLATIN) [Suspect]
     Indication: OVARIAN CANCER
     Dosage: 490 MG  MILLIGRAM (S), UNKNOWN , INTRAVENOUS
     Route: 042
     Dates: start: 20120110, end: 20120110
  2. (PACLITAXEL EBEWE) [Concomitant]
  3. (POLARAMINE) [Concomitant]
  4. (METHYLPREDNISOLONE MERCK) [Concomitant]
  5. (ZOHREN ) [Concomitant]
  6. (AZANTAC) [Concomitant]

REACTIONS (4)
  - Headache [None]
  - Pruritus [None]
  - Nausea [None]
  - Hypersensitivity [None]
